FAERS Safety Report 18015429 (Version 1)
Quarter: 2020Q3

REPORT INFORMATION
  Report Type: Report from Study
  Country: US (occurrence: US)
  Receive Date: 20200713
  Receipt Date: 20200713
  Transmission Date: 20201103
  Serious: Yes (Other)
  Sender: FDA-Public Use
  Company Number: US-EISAI MEDICAL RESEARCH-EC-2020-074342

PATIENT
  Age: 62 Year
  Sex: Female

DRUGS (3)
  1. KEYTRUDA [Concomitant]
     Active Substance: PEMBROLIZUMAB
     Indication: ENDOMETRIAL CANCER
  2. LENVIMA [Suspect]
     Active Substance: LENVATINIB
     Indication: ENDOMETRIAL CANCER
     Route: 048
     Dates: start: 20200506, end: 202005
  3. LENVIMA [Suspect]
     Active Substance: LENVATINIB
     Route: 048
     Dates: start: 20200513, end: 202006

REACTIONS (9)
  - Pulmonary embolism [Recovered/Resolved]
  - Influenza like illness [Recovered/Resolved]
  - Nausea [Recovered/Resolved]
  - Malaise [Recovered/Resolved]
  - Insomnia [Not Recovered/Not Resolved]
  - Asthenia [Unknown]
  - Vomiting [Recovered/Resolved]
  - Pain in extremity [Recovered/Resolved]
  - Myalgia [Recovered/Resolved]

NARRATIVE: CASE EVENT DATE: 2020
